FAERS Safety Report 6649124-9 (Version None)
Quarter: 2010Q1

REPORT INFORMATION
  Report Type: 
  Country: None (occurrence: None)
  Receive Date: 20100322
  Receipt Date: 20100305
  Transmission Date: 20100710
  Serious: Yes (Hospitalization)
  Sender: FDA-Public Use
  Company Number: 10-094

PATIENT
  Age: 19 Year
  Sex: Male

DRUGS (3)
  1. IBUPROFEN [Suspect]
     Dosage: 200-300 TABLETS, ORAL; PRIOR TO 02/27/10
     Route: 048
     Dates: end: 20100227
  2. COCAINE [Concomitant]
  3. ALPRAZOLAM [Concomitant]

REACTIONS (4)
  - HAEMATEMESIS [None]
  - METABOLIC ACIDOSIS [None]
  - OVERDOSE [None]
  - SOMNOLENCE [None]
